FAERS Safety Report 5619067-8 (Version None)
Quarter: 2008Q1

REPORT INFORMATION
  Report Type: 
  Country: None (occurrence: None)
  Receive Date: 20080204
  Receipt Date: 20080121
  Transmission Date: 20080703
  Serious: Yes (Hospitalization, Other)
  Sender: FDA-Public Use
  Company Number: A-US2007-17941

PATIENT
  Age: 40 Year
  Sex: Female

DRUGS (2)
  1. TRACLEER [Suspect]
     Indication: PULMONARY HYPERTENSION
     Dosage: ORAL
     Route: 048
     Dates: start: 20070828, end: 20080121
  2. VENTAVIS [Concomitant]

REACTIONS (4)
  - COUGH [None]
  - HEART RATE INCREASED [None]
  - HEPATIC FAILURE [None]
  - HYPOTENSION [None]
